FAERS Safety Report 5444736-2 (Version None)
Quarter: 2007Q3

REPORT INFORMATION
  Report Type: 
  Country: None (occurrence: None)
  Receive Date: 20070906
  Receipt Date: 20070409
  Transmission Date: 20080115
  Serious: No
  Sender: FDA-Public Use
  Company Number: A0640953A

PATIENT
  Age: 57 Year
  Sex: Female
  Weight: 98.2 kg

DRUGS (7)
  1. REQUIP [Suspect]
     Indication: RESTLESS LEGS SYNDROME
     Dosage: .25MG PER DAY
     Route: 048
     Dates: start: 20070223
  2. SINEMET [Suspect]
     Dosage: 3TAB AT NIGHT
  3. MIRAPEX [Suspect]
     Dosage: .5MG AT NIGHT
  4. DIOVAN [Concomitant]
  5. ESTRACE [Concomitant]
  6. LORTAB [Concomitant]
  7. VITAMIN B-12 [Concomitant]

REACTIONS (5)
  - BLOOD PRESSURE INCREASED [None]
  - DRUG INEFFECTIVE [None]
  - DRUG WITHDRAWAL SYNDROME [None]
  - INSOMNIA [None]
  - RESTLESS LEGS SYNDROME [None]
